FAERS Safety Report 19472165 (Version 1)
Quarter: 2021Q2

REPORT INFORMATION
  Report Type: Spontaneous
  Country: US (occurrence: US)
  Receive Date: 20210629
  Receipt Date: 20210629
  Transmission Date: 20210717
  Serious: Yes (Other)
  Sender: FDA-Public Use
  Company Number: None

PATIENT
  Age: 60 Year
  Sex: Female
  Weight: 75.15 kg

DRUGS (17)
  1. VIC D [Concomitant]
  2. SIMVASTATIN. [Concomitant]
     Active Substance: SIMVASTATIN
  3. AMLODIPINE [Concomitant]
     Active Substance: AMLODIPINE BESYLATE
  4. BUT/APAP/CAFF [Concomitant]
  5. LISINOPRIL. [Concomitant]
     Active Substance: LISINOPRIL
  6. VITAMIN E [Concomitant]
     Active Substance: .ALPHA.-TOCOPHEROL
  7. TYLENOL FOR RA [Concomitant]
  8. CITALOPRAM [Concomitant]
     Active Substance: CITALOPRAM HYDROBROMIDE
  9. HYDROXYCHLOROQUINE SULFATE 200MG TABLETS, USP [Suspect]
     Active Substance: HYDROXYCHLOROQUINE SULFATE
     Indication: RHEUMATOID ARTHRITIS
     Dosage: ?          QUANTITY:2 CAPSULE(S);?
     Route: 048
     Dates: start: 20191022, end: 20210301
  10. RIZATRIPTAN. [Concomitant]
     Active Substance: RIZATRIPTAN
  11. NO DRUG NAME [Concomitant]
  12. VIC C [Concomitant]
  13. ASPERCREME NOS [Concomitant]
     Active Substance: MENTHOL\TROLAMINE SALICYLATE
  14. DULOXETINE SE [Concomitant]
  15. DIAZEPAM. [Concomitant]
     Active Substance: DIAZEPAM
  16. TALTZ [Concomitant]
     Active Substance: IXEKIZUMAB
  17. NO DRUG NAME [Concomitant]

REACTIONS (4)
  - Cataract [None]
  - Alopecia [None]
  - Retinal tear [None]
  - Contusion [None]

NARRATIVE: CASE EVENT DATE: 20210101
